FAERS Safety Report 8404848-8 (Version None)
Quarter: 2012Q2

REPORT INFORMATION
  Report Type: 
  Country: None (occurrence: None)
  Receive Date: 20120601
  Receipt Date: 20120523
  Transmission Date: 20120825
  Serious: Yes (Other)
  Sender: FDA-Public Use
  Company Number: US-ASTRAZENECA-2012SE33436

PATIENT
  Sex: Female

DRUGS (1)
  1. SEROQUEL [Suspect]
     Route: 048

REACTIONS (6)
  - INSOMNIA [None]
  - CONVULSION [None]
  - VOMITING [None]
  - DEPRESSED MOOD [None]
  - INTENTIONAL DRUG MISUSE [None]
  - BIPOLAR DISORDER [None]
